FAERS Safety Report 17576416 (Version 1)
Quarter: 2020Q1

REPORT INFORMATION
  Report Type: Spontaneous
  Country: US (occurrence: US)
  Receive Date: 20200318
  Receipt Date: 20200318
  Transmission Date: 20200409
  Serious: Yes (Hospitalization)
  Sender: FDA-Public Use
  Company Number: None

PATIENT
  Age: 58 Year
  Sex: Female

DRUGS (5)
  1. XELJANZ XR [Suspect]
     Active Substance: TOFACITINIB CITRATE
     Indication: RHEUMATOID ARTHRITIS
     Route: 048
     Dates: start: 20181025
  2. ASPIR-LOW [Concomitant]
     Active Substance: ASPIRIN
  3. LEFLUNOMIDE. [Concomitant]
     Active Substance: LEFLUNOMIDE
  4. HYDROXYCHLOR [Concomitant]
     Active Substance: HYDROXYCHLOROQUINE
  5. VALTREX [Concomitant]
     Active Substance: VALACYCLOVIR HYDROCHLORIDE

REACTIONS (1)
  - Rheumatoid arthritis [None]
